FAERS Safety Report 6800405-5 (Version None)
Quarter: 2010Q2

REPORT INFORMATION
  Report Type: 
  Country: None (occurrence: None)
  Receive Date: 20100629
  Receipt Date: 20100113
  Transmission Date: 20101027
  Serious: Yes (Other)
  Sender: FDA-Public Use
  Company Number: US-ASTRAZENECA-2006UW03003

PATIENT
  Age: 47 Year
  Sex: Male
  Weight: 86.2 kg

DRUGS (23)
  1. SEROQUEL [Suspect]
     Indication: ANXIETY
     Route: 048
     Dates: start: 20000101, end: 20030701
  2. SEROQUEL [Suspect]
     Indication: DEPRESSION
     Route: 048
     Dates: start: 20000101, end: 20030701
  3. SEROQUEL [Suspect]
     Indication: BIPOLAR DISORDER
     Route: 048
     Dates: start: 20000101, end: 20030701
  4. SEROQUEL [Suspect]
     Dosage: 100 MG-400 MG
     Route: 048
  5. SEROQUEL [Suspect]
     Dosage: 100 MG-400 MG
     Route: 048
  6. SEROQUEL [Suspect]
     Dosage: 100 MG-400 MG
     Route: 048
  7. RISPERDAL [Concomitant]
     Dates: start: 20030101
  8. OLANZAPINE [Concomitant]
     Dosage: 50TO 10 MG
     Dates: start: 20030101
  9. THORAZINE [Concomitant]
     Dates: start: 20010101
  10. PAXIL [Concomitant]
     Dosage: 12.5 TO 25 MG
     Dates: start: 19990101
  11. XANAX [Concomitant]
     Dates: start: 19990101
  12. TRAZODONE HYDROCHLORIDE [Concomitant]
  13. KLONOPIN [Concomitant]
  14. TROZINE [Concomitant]
  15. EFFEXOR XR [Concomitant]
  16. VALIUM [Concomitant]
  17. CELEXA [Concomitant]
  18. ASPIRIN [Concomitant]
  19. SERZONE [Concomitant]
  20. ATIVAN [Concomitant]
  21. SORBITRATE [Concomitant]
  22. DILANTIN [Concomitant]
  23. LISINOPRIL [Concomitant]

REACTIONS (3)
  - CARDIAC DISORDER [None]
  - DIABETES MELLITUS [None]
  - WEIGHT INCREASED [None]
